FAERS Safety Report 6713041-6 (Version None)
Quarter: 2010Q2

REPORT INFORMATION
  Report Type: 
  Country: None (occurrence: None)
  Receive Date: 20100506
  Receipt Date: 20100429
  Transmission Date: 20101027
  Serious: Yes (Life-Threatening, Other)
  Sender: FDA-Public Use
  Company Number: CO-SANOFI-AVENTIS-2010SA025243

PATIENT
  Age: 47 Year
  Sex: Male

DRUGS (6)
  1. CLEXANE [Suspect]
     Route: 058
     Dates: start: 20100426
  2. CLEXANE [Suspect]
     Indication: ACUTE CORONARY SYNDROME
     Route: 058
     Dates: start: 20100426
  3. CLEXANE [Suspect]
     Route: 058
     Dates: start: 20100426
  4. CLEXANE [Suspect]
     Route: 058
     Dates: start: 20100426
  5. ASPIRIN [Concomitant]
     Indication: ACUTE CORONARY SYNDROME
     Route: 048
     Dates: start: 20100426
  6. PLAVIX [Concomitant]
     Indication: ACUTE CORONARY SYNDROME
     Route: 048
     Dates: start: 20100428

REACTIONS (2)
  - DRUG INEFFECTIVE [None]
  - IN-STENT CORONARY ARTERY RESTENOSIS [None]
